FAERS Safety Report 17243876 (Version 1)
Quarter: 2019Q4

REPORT INFORMATION
  Report Type: Spontaneous
  Country: US (occurrence: US)
  Receive Date: 20191212
  Receipt Date: 20191212
  Transmission Date: 20200122
  Serious: Yes (Life-Threatening, Hospitalization)
  Sender: FDA-Public Use
  Company Number: None

PATIENT
  Age: 62 Year
  Sex: Female
  Weight: 79.38 kg

DRUGS (7)
  1. LOVASTATIN. [Suspect]
     Active Substance: LOVASTATIN
     Indication: BLOOD CHOLESTEROL INCREASED
     Dates: end: 20190216
  2. TOPROL XL [Concomitant]
     Active Substance: METOPROLOL SUCCINATE
  3. HYDROXYZINE [Concomitant]
     Active Substance: HYDROXYZINE HYDROCHLORIDE
  4. CLONIDINE PATCH [Concomitant]
     Active Substance: CLONIDINE
  5. URSODIOL. [Concomitant]
     Active Substance: URSODIOL
  6. XYZAL [Concomitant]
     Active Substance: LEVOCETIRIZINE DIHYDROCHLORIDE
  7. ESCITALOPRAM [Concomitant]
     Active Substance: ESCITALOPRAM OXALATE

REACTIONS (15)
  - Hypertension [None]
  - Ear infection [None]
  - Fatigue [None]
  - Pruritus [None]
  - Contusion [None]
  - Alopecia [None]
  - Influenza [None]
  - Headache [None]
  - Drug-induced liver injury [None]
  - Liver injury [None]
  - Hepatic failure [None]
  - Pneumonia [None]
  - Chromaturia [None]
  - Sinusitis [None]
  - Blood pressure decreased [None]

NARRATIVE: CASE EVENT DATE: 20191202
